FAERS Safety Report 17542816 (Version 1)
Quarter: 2020Q1

REPORT INFORMATION
  Report Type: Report from Study
  Country: IT (occurrence: IT)
  Receive Date: 20200315
  Receipt Date: 20200315
  Transmission Date: 20200409
  Serious: Yes (Other)
  Sender: FDA-Public Use
  Company Number: IT-TEVA-2020-IT-1199895

PATIENT
  Age: 58 Year
  Sex: Male

DRUGS (3)
  1. AMLODIPINA TEVA ITALIA 5 MG COMPRESSE [Suspect]
     Active Substance: AMLODIPINE BESYLATE
     Dates: start: 20190827, end: 20191019
  2. FUROSEMIDE. [Concomitant]
     Active Substance: FUROSEMIDE
     Dosage: 25 MG
  3. FOLIC ACID. [Concomitant]
     Active Substance: FOLIC ACID
     Dosage: 5 MG

REACTIONS (2)
  - Oedema peripheral [Recovered/Resolved]
  - Erythema [Recovered/Resolved]

NARRATIVE: CASE EVENT DATE: 20191015
